FAERS Safety Report 8015652-7 (Version None)
Quarter: 2011Q4

REPORT INFORMATION
  Report Type: 
  Country: None (occurrence: None)
  Receive Date: 20111230
  Receipt Date: 20111229
  Transmission Date: 20120403
  Serious: No
  Sender: FDA-Public Use
  Company Number: US-BAYER-2011-088751

PATIENT
  Age: 28 Year
  Sex: Female

DRUGS (2)
  1. MIRENA [Suspect]
     Indication: CONTRACEPTION
     Dosage: 20 MCG/24HR, CONT
     Route: 015
     Dates: start: 20100501
  2. MIRENA [Suspect]
     Indication: MENORRHAGIA

REACTIONS (6)
  - UNEVALUABLE EVENT [None]
  - BREAST PAIN [None]
  - FEELING ABNORMAL [None]
  - DEVICE EXPULSION [None]
  - NAUSEA [None]
  - BREAST ENLARGEMENT [None]
